FAERS Safety Report 11196120 (Version 6)
Quarter: 2015Q4

REPORT INFORMATION
  Report Type: Spontaneous
  Country: US (occurrence: US)
  Receive Date: 20150617
  Receipt Date: 20151009
  Transmission Date: 20160304
  Serious: Yes (Death, Hospitalization, Other)
  Sender: FDA-Public Use
  Company Number: US-PFIZER INC-2015199333

PATIENT
  Age: 79 Year
  Sex: Female
  Weight: 63 kg

DRUGS (44)
  1. PROTONIX [Concomitant]
     Active Substance: PANTOPRAZOLE SODIUM
     Dosage: 40 MG, 2X/DAY
     Route: 048
  2. PROVENTIL [Concomitant]
     Active Substance: ALBUTEROL
     Dosage: 0.083 %, (2.5 MG/ 3 ML)
  3. ROBITUSSIN DM [Concomitant]
     Active Substance: DEXTROMETHORPHAN HYDROBROMIDE\GUAIFENESIN
     Dosage: (10-100 MG 15 ML LIQD LIQUID)
  4. LANTUS [Concomitant]
     Active Substance: INSULIN GLARGINE
     Dosage: UNK, 4X/DAY
  5. PROVENTIL /00139501/ [Concomitant]
     Dosage: , 0.083 %, (2.5 MG/ 3 ML), 2.5 MG BY NEBULIZATION 4 TIMES A DAY
  6. OMNICEF /00497602/ [Concomitant]
     Active Substance: CEFOTAXIME SODIUM
     Indication: URINARY TRACT INFECTION
     Dosage: 300 MG, EVERY 12 HOURS FOR 7 DAYS
     Route: 048
  7. MELATONIN [Concomitant]
     Active Substance: MELATONIN
     Dosage: 3 MG NIGHTLY AS NEEDED
     Route: 048
  8. POLYETHYLENE GLYCOL [Concomitant]
     Active Substance: POLYETHYLENE GLYCOLS
     Dosage: 17 G, UNK
     Route: 048
  9. AFINITOR [Suspect]
     Active Substance: EVEROLIMUS
     Indication: BREAST CANCER METASTATIC
     Dosage: 10 MG, 1X/DAY
     Route: 048
     Dates: start: 201501
  10. NOVOLOG [Concomitant]
     Active Substance: INSULIN ASPART
     Dosage: (100 UNIT/ML LNPN FLEXPEN) (INJECT 0-5 UNITS UNDER THE SKIN), AS NEEDED
  11. LASIX [Concomitant]
     Active Substance: FUROSEMIDE
     Dosage: 40 MG, UNK
     Route: 048
  12. ATROVENT [Concomitant]
     Active Substance: IPRATROPIUM BROMIDE
     Dosage: 0.02 %, (0.5MG/ 2.5ML)
  13. CEFDINIR. [Concomitant]
     Active Substance: CEFDINIR
     Indication: URINARY TRACT INFECTION
     Dosage: 300 MG, UNK(EVERY 12 HOURS FOR 7 DAYS)
     Route: 048
  14. TYLENOL [Concomitant]
     Active Substance: ACETAMINOPHEN
     Indication: PAIN
     Dosage: 325 MG, UNK
  15. VENTOLIN [Concomitant]
     Active Substance: ALBUTEROL SULFATE
     Dosage: 0.083 %, (2.5 MG/ 3 ML )
  16. PLAVIX [Concomitant]
     Active Substance: CLOPIDOGREL BISULFATE
     Dosage: 75 MG, 1X/DAY
     Route: 048
  17. ZESTRIL [Concomitant]
     Active Substance: LISINOPRIL
     Dosage: 20 MG, 1X/DAY
     Route: 048
  18. OXYCONTIN [Concomitant]
     Active Substance: OXYCODONE HYDROCHLORIDE
     Dosage: 10 MG, 2X/DAY
     Route: 048
  19. LYRICA [Concomitant]
     Active Substance: PREGABALIN
     Dosage: 50 MG, 2X/DAY
     Route: 048
  20. ASCORBIC ACID. [Concomitant]
     Active Substance: ASCORBIC ACID
     Dosage: 500 MG, 2X/DAY
     Route: 048
  21. ASPIRIN. [Concomitant]
     Active Substance: ASPIRIN
     Dosage: 81 MG, (81 MG EC)
     Route: 048
  22. COREG [Concomitant]
     Active Substance: CARVEDILOL
     Dosage: 6.25 MG, 2X/DAY
  23. GLYCOLAX [Concomitant]
     Active Substance: POLYETHYLENE GLYCOL 3350
     Dosage: UNK, 2X/DAY
  24. ALDACTONE [Concomitant]
     Active Substance: SPIRONOLACTONE
     Dosage: 25 MG, 1X/DAY
     Route: 048
  25. XARELTO [Concomitant]
     Active Substance: RIVAROXABAN
     Dosage: 20 MG, 1X/DAY
     Route: 048
  26. AFINITOR [Suspect]
     Active Substance: EVEROLIMUS
     Dosage: 10 MG, DAILY
     Dates: start: 20150214, end: 20150315
  27. LEVEMIR [Concomitant]
     Active Substance: INSULIN DETEMIR
     Dosage: (100 UNIT/ ML (3 ML) LNPN FLEXTOUCH, FLEXPEN) (INJECT 10 UNITS UNDER THE SKIN NIGHTLY)
  28. PERCOCET [Concomitant]
     Active Substance: ACETAMINOPHEN\OXYCODONE HYDROCHLORIDE
     Dosage: 1 DF, AS NEEDED (EVERY 4 HOURS)
     Route: 048
  29. XOPENEX [Concomitant]
     Active Substance: LEVALBUTEROL HYDROCHLORIDE
     Indication: WHEEZING
     Dosage: (1 AMPULE BY NEBULISATION EVERY 6 (SIX) HOURS AS NEEDED FOR WHEEZING)(1.25MG/ 3ML)
  30. PRINIVIL [Concomitant]
     Active Substance: LISINOPRIL
     Dosage: 20 MG, 1X/DAY
     Route: 048
  31. ZOFRAN [Concomitant]
     Active Substance: ONDANSETRON HYDROCHLORIDE
     Dosage: 4 MG, 3X/DAY
  32. XGEVA [Concomitant]
     Active Substance: DENOSUMAB
     Indication: METASTASES TO BONE
     Dosage: 120 MG, (1.7 ML (70 MG/ ML) SOLN)
     Route: 058
  33. DULCOLAX NOS [Concomitant]
     Active Substance: BISACODYL OR DOCUSATE SODIUM
     Dosage: 10 MG, UNK
  34. AROMASIN [Suspect]
     Active Substance: EXEMESTANE
     Indication: BREAST CANCER METASTATIC
     Dosage: 25 MG, DAILY
     Route: 048
     Dates: start: 20141121, end: 20150529
  35. TYLENOL [Concomitant]
     Active Substance: ACETAMINOPHEN
     Dosage: 650 EVERY 4 HOURS AS NEEDED
     Route: 048
  36. COLLAGENASE SANTYL [Concomitant]
     Active Substance: COLLAGENASE CLOSTRIDIUM HISTOLYTICUM
     Dosage: 2 DF, 1X/DAY
     Route: 061
  37. SENNA [Concomitant]
     Active Substance: SENNA LEAF\SENNOSIDES\SENNOSIDES A AND B
     Dosage: 2 DF, 1X/DAY
     Route: 048
  38. HUMULIN R [Concomitant]
     Active Substance: INSULIN HUMAN
     Dosage: (100 UNIT/ML INJECTION) (INJECT UNDER THE SKIN 4 (FOUR) TIMES A DAY BEFORE MEALS AND NIGHTLY SLIDING
  39. AMBIEN [Concomitant]
     Active Substance: ZOLPIDEM TARTRATE
     Dosage: 5 MG, UNK
  40. CALCIUM CARBONATE-VITAMIN D [Concomitant]
     Active Substance: CALCIUM CARBONATE\VITAMIN D
     Dosage: (600 MG (1,500MG) 800 UNIT TAB) , 3X/DAY
     Route: 048
  41. LASIX [Concomitant]
     Active Substance: FUROSEMIDE
     Dosage: 20 MG, 1X/DAY
     Route: 048
  42. NOVOLIN R [Concomitant]
     Active Substance: INSULIN HUMAN
     Dosage: (100 UNIT/ML INJECTION) (INJECT UNDER THE SKIN 4 (FOUR) TIMES A DAY)
  43. ZINCATE [Concomitant]
     Dosage: 220 MG, 1X/DAY
     Route: 048
  44. VENTOLIN [Concomitant]
     Active Substance: ALBUTEROL SULFATE
     Dosage: 0.083 %, (2.5 MG/ 3 ML) 2.5 MG BY NEBULIZATION 4 TIMES A DAY

REACTIONS (26)
  - Diabetes mellitus [Unknown]
  - Microcytic anaemia [Unknown]
  - Pain in extremity [Unknown]
  - Osteoarthritis [Unknown]
  - Cardiac failure congestive [Fatal]
  - Condition aggravated [Fatal]
  - Respiratory failure [Unknown]
  - Pelvic pain [Unknown]
  - Gastrooesophageal reflux disease [Unknown]
  - Skin ulcer [Unknown]
  - Chronic obstructive pulmonary disease [Unknown]
  - Essential hypertension [Unknown]
  - Peripheral nerve lesion [Unknown]
  - Breast cancer metastatic [Fatal]
  - Anaemia of chronic disease [Unknown]
  - Wound infection [Unknown]
  - Arthralgia [Unknown]
  - Hyperlipidaemia [Unknown]
  - Hypercalcaemia [Unknown]
  - Congenital neuropathy [Unknown]
  - Lumbosacral radiculopathy [Unknown]
  - Disease progression [Fatal]
  - Acute kidney injury [Unknown]
  - Thrombosis [Unknown]
  - Dyspnoea [Unknown]
  - Menopausal symptoms [Unknown]

NARRATIVE: CASE EVENT DATE: 20150102
